FAERS Safety Report 12237492 (Version 1)
Quarter: 2016Q2

REPORT INFORMATION
  Report Type: Spontaneous
  Country: US (occurrence: None)
  Receive Date: 20160404
  Receipt Date: 20160404
  Transmission Date: 20160815
  Serious: Yes (Disabling, Other)
  Sender: FDA-Public Use
  Company Number: None

PATIENT
  Age: 43 Year
  Sex: Female
  Weight: 63.5 kg

DRUGS (5)
  1. CYMBALTA [Suspect]
     Active Substance: DULOXETINE HYDROCHLORIDE
     Indication: FIBROMYALGIA
     Route: 048
     Dates: start: 20110818, end: 20160218
  2. ZOFRAN [Concomitant]
     Active Substance: ONDANSETRON HYDROCHLORIDE
  3. ONE A DAY WOMEN^S MULTIVITAMIN [Concomitant]
  4. TYLENOL [Concomitant]
     Active Substance: ACETAMINOPHEN
  5. PRILOSEC [Concomitant]
     Active Substance: OMEPRAZOLE MAGNESIUM

REACTIONS (17)
  - Disease recurrence [None]
  - Family stress [None]
  - Drug withdrawal syndrome [None]
  - Nausea [None]
  - Panic attack [None]
  - Mobility decreased [None]
  - Drug ineffective [None]
  - Migraine [None]
  - Suicidal ideation [None]
  - Personal relationship issue [None]
  - Anger [None]
  - Feeling abnormal [None]
  - Depression [None]
  - Mental disorder [None]
  - Fibromyalgia [None]
  - Pain [None]
  - Lethargy [None]

NARRATIVE: CASE EVENT DATE: 20160219
